FAERS Safety Report 4316508-3 (Version None)
Quarter: 2004Q1

REPORT INFORMATION
  Report Type: 
  Country: None (occurrence: None)
  Receive Date: 20040312
  Receipt Date: 20010608
  Transmission Date: 20041129
  Serious: Yes (Hospitalization)
  Sender: FDA-Public Use
  Company Number: WAES 01060813

PATIENT
  Age: 71 Year
  Sex: Female

DRUGS (4)
  1. CLONAZEPAM [Concomitant]
  2. LITHIUM CARBONATE [Suspect]
     Route: 048
  3. ZYPREXA [Concomitant]
  4. VIOXX [Suspect]
     Route: 048
     Dates: start: 20010519, end: 20010523

REACTIONS (10)
  - APATHY [None]
  - DRUG INTERACTION [None]
  - DRUG LEVEL INCREASED [None]
  - GAIT DISTURBANCE [None]
  - HYPERSOMNIA [None]
  - HYPERTONIA [None]
  - MOOD ALTERED [None]
  - MYOCLONUS [None]
  - OEDEMA PERIPHERAL [None]
  - SPEECH DISORDER [None]
